FAERS Safety Report 8289720-9 (Version None)
Quarter: 2012Q2

REPORT INFORMATION
  Report Type: 
  Country: None (occurrence: None)
  Receive Date: 20120417
  Receipt Date: 20120410
  Transmission Date: 20120825
  Serious: No
  Sender: FDA-Public Use
  Company Number: US-PFIZER INC-2012089602

PATIENT
  Sex: Female
  Weight: 54.422 kg

DRUGS (8)
  1. COPAXONE [Concomitant]
     Indication: MULTIPLE SCLEROSIS
     Dosage: 20 MG, DAILY
     Dates: start: 20000101
  2. BACLOFEN [Concomitant]
     Indication: MUSCLE SPASTICITY
     Dosage: 20 MG, 2X/DAY
     Dates: start: 20030101
  3. LYRICA [Suspect]
     Dosage: 150 MG, DAILY
  4. LYRICA [Suspect]
     Indication: NEURALGIA
     Dosage: 50 MG, DAILY
     Dates: start: 20120301
  5. ZOLOFT [Concomitant]
     Indication: DEPRESSION
     Dosage: 50 MG, DAILY
     Dates: start: 20020101
  6. ZOLOFT [Concomitant]
     Indication: ANXIETY
  7. LYRICA [Suspect]
     Dosage: 50 MG, 3X/DAY
     Route: 048
     Dates: end: 20120406
  8. LYRICA [Suspect]
     Dosage: 100 MG, DAILY

REACTIONS (4)
  - BLEPHAROSPASM [None]
  - COORDINATION ABNORMAL [None]
  - NEURALGIA [None]
  - DYSKINESIA [None]
